FAERS Safety Report 23651863 (Version 2)
Quarter: 2024Q3

REPORT INFORMATION
  Report Type: Spontaneous
  Country: IT (occurrence: IT)
  Receive Date: 20240320
  Receipt Date: 20240730
  Transmission Date: 20241016
  Serious: Yes (Life-Threatening, Other)
  Sender: HIKMA
  Company Number: None

PATIENT
  Age: 62 Year
  Sex: Female

DRUGS (2)
  1. CYCLOPHOSPHAMIDE [Suspect]
     Active Substance: CYCLOPHOSPHAMIDE
     Indication: Breast cancer
     Dosage: 1146 MILLIGRAM, 3W
     Route: 042
     Dates: start: 20240208, end: 20240208
  2. EPIRUBICIN HYDROCHLORIDE [Suspect]
     Active Substance: EPIRUBICIN HYDROCHLORIDE
     Indication: Breast cancer
     Dosage: 171.9 MILLIGRAM, 3W
     Route: 042
     Dates: start: 20240208, end: 20240208

REACTIONS (2)
  - Neutropenia [Recovered/Resolved]
  - Toxic skin eruption [Recovering/Resolving]

NARRATIVE: CASE EVENT DATE: 20240216
